FAERS Safety Report 6057356-6 (Version None)
Quarter: 2009Q1

REPORT INFORMATION
  Report Type: 
  Country: None (occurrence: None)
  Receive Date: 20090129
  Receipt Date: 20090121
  Transmission Date: 20090719
  Serious: Yes (Death)
  Sender: FDA-Public Use
  Company Number: US-JNJFOC-20090105697

PATIENT
  Sex: Female
  Weight: 56.7 kg

DRUGS (6)
  1. FENTANYL CITRATE [Suspect]
     Indication: BACK PAIN
     Route: 062
  2. WELLBUTRIN [Concomitant]
  3. VALIUM [Concomitant]
  4. TYLENOL [Concomitant]
  5. OLANZAPINE [Concomitant]
  6. DEPAKOTE [Concomitant]

REACTIONS (2)
  - DEATH [None]
  - DRUG TOXICITY [None]
